FAERS Safety Report 6749784-8 (Version None)
Quarter: 2010Q2

REPORT INFORMATION
  Report Type: 
  Country: None (occurrence: None)
  Receive Date: 20100601
  Receipt Date: 20100527
  Transmission Date: 20101027
  Serious: Yes (Hospitalization)
  Sender: FDA-Public Use
  Company Number: GR-MERCK-1005GRC00005

PATIENT
  Age: 41 Year
  Sex: Male
  Weight: 87 kg

DRUGS (2)
  1. ISENTRESS [Suspect]
     Indication: HIV INFECTION
     Route: 048
     Dates: start: 20091004, end: 20091004
  2. ABACAVIR SULFATE AND LAMIVUDINE [Suspect]
     Indication: HIV INFECTION
     Route: 048
     Dates: start: 20091004, end: 20091004

REACTIONS (2)
  - ANAPHYLACTIC REACTION [None]
  - HYPOAESTHESIA ORAL [None]
